FAERS Safety Report 8475107-2 (Version None)
Quarter: 2012Q2

REPORT INFORMATION
  Report Type: 
  Country: None (occurrence: None)
  Receive Date: 20120622
  Receipt Date: 20120611
  Transmission Date: 20120825
  Serious: Yes (Hospitalization, Other)
  Sender: FDA-Public Use
  Company Number: 2012P1041101

PATIENT
  Age: 25 Year
  Sex: Female

DRUGS (8)
  1. LAMIVUDINE [Concomitant]
  2. DOXORUBICIN HCL [Concomitant]
  3. VINCRISTINE [Concomitant]
  4. DEXAMETHASONE [Suspect]
     Indication: ACUTE LYMPHOCYTIC LEUKAEMIA
     Dosage: 10 MG/M^2;QD; 5 MG/M^2;QD; 2.5 MG/M^2;QD; 1.25 MG/M^2;QD;
  5. DEXAMETHASONE [Suspect]
     Indication: ACUTE LYMPHOCYTIC LEUKAEMIA
     Dosage: 10 MG/M^2;QD; 5 MG/M^2;QD; 2.5 MG/M^2;QD; 1.25 MG/M^2;QD;
  6. DEXAMETHASONE [Suspect]
     Indication: ACUTE LYMPHOCYTIC LEUKAEMIA
     Dosage: 10 MG/M^2;QD; 5 MG/M^2;QD; 2.5 MG/M^2;QD; 1.25 MG/M^2;QD;
  7. DEXAMETHASONE [Suspect]
     Indication: ACUTE LYMPHOCYTIC LEUKAEMIA
     Dosage: 10 MG/M^2;QD; 5 MG/M^2;QD; 2.5 MG/M^2;QD; 1.25 MG/M^2;QD;
  8. L-ASPARAGINASE (NO PREF. NAME) [Suspect]
     Indication: ACUTE LYMPHOCYTIC LEUKAEMIA
     Dosage: 10,000 U/M^2; DAYS 8, 11, 15, 18;

REACTIONS (7)
  - CYTOMEGALOVIRUS VIRAEMIA [None]
  - HYPERTRIGLYCERIDAEMIA [None]
  - ANAEMIA [None]
  - HEPATIC STEATOSIS [None]
  - CYTOMEGALOVIRUS HEPATITIS [None]
  - ABDOMINAL DISTENSION [None]
  - THROMBOCYTOPENIA [None]
